FAERS Safety Report 14892917 (Version 2)
Quarter: 2018Q2

REPORT INFORMATION
  Report Type: Spontaneous
  Country: US (occurrence: US)
  Receive Date: 20180514
  Receipt Date: 20180515
  Transmission Date: 20180711
  Serious: Yes (Death)
  Sender: FDA-Public Use
  Company Number: US-PFIZER INC-2018138256

PATIENT
  Age: 41 Year
  Sex: Male

DRUGS (2)
  1. MYLOTARG [Suspect]
     Active Substance: GEMTUZUMAB OZOGAMICIN
     Dosage: 4.5 MG, UNK (DAY 1 AND DAY 8 THEN DAY 1 EVERY 4 WEEKS)
  2. MYLOTARG [Suspect]
     Active Substance: GEMTUZUMAB OZOGAMICIN
     Indication: ACUTE MYELOID LEUKAEMIA
     Dosage: CYCLIC (DAY 1 6MG/M2 AND DAY 8 3MG/M2 THEN DAY 1 2MG/M2 EVERY 4 WEEKS)

REACTIONS (1)
  - Haemorrhagic stroke [Fatal]
